FAERS Safety Report 21995390 (Version 1)
Quarter: 2023Q1

REPORT INFORMATION
  Report Type: Other
  Country: None (occurrence: US)
  Receive Date: 20230215
  Receipt Date: 20230215
  Transmission Date: 20230418
  Serious: Yes (Hospitalization)
  Sender: FDA-Public Use
  Company Number: US-Mission Pharmacal Company-2137995

PATIENT
  Age: 60 Year
  Sex: Male

DRUGS (3)
  1. THIOLA EC [Suspect]
     Active Substance: TIOPRONIN
     Indication: Cystinuria
     Route: 048
     Dates: start: 20191017
  2. HUMALOG [Concomitant]
     Active Substance: INSULIN LISPRO
  3. UROCIT-K [Concomitant]
     Active Substance: POTASSIUM CITRATE
     Route: 048

REACTIONS (2)
  - Flank pain [Unknown]
  - Drug ineffective [Unknown]
